FAERS Safety Report 10882140 (Version 1)
Quarter: 2015Q1

REPORT INFORMATION
  Report Type: Spontaneous
  Country: US (occurrence: None)
  Receive Date: 20150226
  Receipt Date: 20150226
  Transmission Date: 20150721
  Serious: Yes (Other)
  Sender: FDA-Public Use
  Company Number: None

PATIENT
  Age: 45 Year
  Sex: Female
  Weight: 68.95 kg

DRUGS (1)
  1. IV. MORPHINE [Suspect]
     Active Substance: MORPHINE
     Indication: HYSTERECTOMY
     Dates: start: 200404

REACTIONS (1)
  - Pruritus [None]

NARRATIVE: CASE EVENT DATE: 200404
